APPROVED DRUG PRODUCT: MORPHINE SULFATE
Active Ingredient: MORPHINE SULFATE
Strength: 1MG/ML
Dosage Form/Route: INJECTABLE;INJECTION
Application: A073374 | Product #001
Applicant: WATSON LABORATORIES INC
Approved: Sep 30, 1991 | RLD: No | RS: No | Type: DISCN